FAERS Safety Report 8399852-2 (Version None)
Quarter: 2012Q2

REPORT INFORMATION
  Report Type: 
  Country: None (occurrence: None)
  Receive Date: 20120531
  Receipt Date: 20110526
  Transmission Date: 20120825
  Serious: No
  Sender: FDA-Public Use
  Company Number: US-NOVEN-11US002516

PATIENT
  Sex: Female
  Weight: 27.211 kg

DRUGS (2)
  1. DAYTRANA [Suspect]
  2. DAYTRANA [Suspect]
     Indication: DYSLEXIA
     Dosage: 10 MG, QD
     Route: 062
     Dates: start: 20110401

REACTIONS (3)
  - APPLICATION SITE PRURITUS [None]
  - PRODUCT QUALITY ISSUE [None]
  - APPLICATION SITE ERYTHEMA [None]
